FAERS Safety Report 4972809-7 (Version None)
Quarter: 2006Q2

REPORT INFORMATION
  Report Type: 
  Country: None (occurrence: None)
  Receive Date: 20060414
  Receipt Date: 20060306
  Transmission Date: 20061013
  Serious: Yes (Life-Threatening, Hospitalization)
  Sender: FDA-Public Use
  Company Number: DE-BRISTOL-MYERS SQUIBB COMPANY-13313382

PATIENT
  Age: 52 Year
  Sex: Male
  Weight: 92 kg

DRUGS (7)
  1. ENDOXAN [Suspect]
     Indication: HODGKIN'S DISEASE STAGE III
     Dates: start: 20060124, end: 20060124
  2. ETOPOSIDE [Suspect]
     Indication: HODGKIN'S DISEASE STAGE III
     Dates: start: 20060124, end: 20060124
  3. ADRIBLASTIN [Suspect]
     Indication: HODGKIN'S DISEASE STAGE III
     Dates: start: 20060124, end: 20060124
  4. DECORTIN-H [Suspect]
     Indication: HODGKIN'S DISEASE STAGE III
     Dates: start: 20060124, end: 20060130
  5. NATULAN [Suspect]
     Indication: HODGKIN'S DISEASE STAGE III
     Dates: start: 20060124, end: 20060130
  6. NEUPOGEN [Suspect]
     Indication: HODGKIN'S DISEASE STAGE III
     Dates: start: 20060124
  7. EPOGEN [Suspect]

REACTIONS (2)
  - ACUTE MYOCARDIAL INFARCTION [None]
  - VENTRICULAR FIBRILLATION [None]
